FAERS Safety Report 5530773-6 (Version None)
Quarter: 2007Q4

REPORT INFORMATION
  Report Type: 
  Country: None (occurrence: None)
  Receive Date: 20071130
  Receipt Date: 20071119
  Transmission Date: 20080405
  Serious: Yes (Other)
  Sender: FDA-Public Use
  Company Number: GB-ELI_LILLY_AND_COMPANY-GB200711004553

PATIENT
  Age: 10 Year
  Weight: 32.35 kg

DRUGS (1)
  1. STRATTERA [Suspect]
     Indication: URINARY RETENTION
     Dates: start: 20050201, end: 20071001

REACTIONS (1)
  - URINARY RETENTION [None]
